FAERS Safety Report 13597328 (Version 1)
Quarter: 2017Q2

REPORT INFORMATION
  Report Type: Spontaneous
  Country: US (occurrence: US)
  Receive Date: 20170531
  Receipt Date: 20170531
  Transmission Date: 20170830
  Serious: Yes (Hospitalization, Other)
  Sender: FDA-Public Use
  Company Number: US-GLAXOSMITHKLINE-US2017080606

PATIENT
  Age: 51 Year
  Sex: Female

DRUGS (13)
  1. BROVANA [Concomitant]
     Active Substance: ARFORMOTEROL TARTRATE
  2. ALBUTEROL. [Concomitant]
     Active Substance: ALBUTEROL
  3. BIOTIN [Concomitant]
     Active Substance: BIOTIN
  4. CALCIUM [Concomitant]
     Active Substance: CALCIUM
  5. MUCINEX [Concomitant]
     Active Substance: GUAIFENESIN
  6. ZYFLO [Concomitant]
     Active Substance: ZILEUTON
  7. LISINOPRIL. [Concomitant]
     Active Substance: LISINOPRIL
  8. NUCALA [Suspect]
     Active Substance: MEPOLIZUMAB
     Indication: PRODUCT USED FOR UNKNOWN INDICATION
     Dosage: UNK
     Route: 042
     Dates: start: 201701
  9. BUDESONIDE. [Concomitant]
     Active Substance: BUDESONIDE
  10. MAGNESIUM [Concomitant]
     Active Substance: MAGNESIUM
  11. HYDROXYZINE [Concomitant]
     Active Substance: HYDROXYZINE HYDROCHLORIDE
  12. PREDNISONE. [Concomitant]
     Active Substance: PREDNISONE
  13. THEOPHYLLINE [Concomitant]
     Active Substance: THEOPHYLLINE ANHYDROUS

REACTIONS (18)
  - Vision blurred [Unknown]
  - Disability [Unknown]
  - Wrong patient received medication [Unknown]
  - Productive cough [Unknown]
  - Vomiting [Unknown]
  - Amnesia [Not Recovered/Not Resolved]
  - Confusional state [Unknown]
  - Pyrexia [Unknown]
  - Dysstasia [Unknown]
  - Myalgia [Not Recovered/Not Resolved]
  - Muscle twitching [Not Recovered/Not Resolved]
  - Disorientation [Unknown]
  - Vertigo [Unknown]
  - Arthralgia [Unknown]
  - Pain [Unknown]
  - Dyspnoea [Unknown]
  - Blood pressure increased [Unknown]
  - Lower respiratory tract infection [Unknown]

NARRATIVE: CASE EVENT DATE: 20170418
